FAERS Safety Report 5805592-3 (Version None)
Quarter: 2008Q3

REPORT INFORMATION
  Report Type: 
  Country: None (occurrence: None)
  Receive Date: 20080710
  Receipt Date: 20080628
  Transmission Date: 20090109
  Serious: Yes (Hospitalization)
  Sender: FDA-Public Use
  Company Number: CA-ELI_LILLY_AND_COMPANY-CA200807000673

PATIENT
  Age: 78 Year
  Sex: Male
  Weight: 56.236 kg

DRUGS (9)
  1. FORTEO [Suspect]
     Indication: OSTEOPOROSIS
     Dosage: 20 UG, DAILY (1/D)
     Route: 058
     Dates: start: 20080428, end: 20080626
  2. FORTEO [Suspect]
     Dosage: 20 UG, DAILY (1/D)
     Route: 058
     Dates: start: 20080628
  3. VITAMIN D [Concomitant]
  4. CALCIUM [Concomitant]
  5. VENTOLIN                                /SCH/ [Concomitant]
  6. SPIRIVA [Concomitant]
  7. SYMBICORT [Concomitant]
  8. MICARDIS [Concomitant]
  9. NEXIUM [Concomitant]

REACTIONS (2)
  - LUNG INFECTION [None]
  - RESPIRATORY DISORDER [None]
